FAERS Safety Report 26055895 (Version 3)
Quarter: 2025Q4

REPORT INFORMATION
  Report Type: Spontaneous
  Country: EU (occurrence: EU)
  Receive Date: 20251118
  Receipt Date: 20251214
  Transmission Date: 20260118
  Serious: No
  Sender: JOHNSON AND JOHNSON
  Company Number: EU-JNJFOC-20251033806

PATIENT
  Age: 65 Year
  Sex: Female

DRUGS (2)
  1. TREMFYA [Suspect]
     Active Substance: GUSELKUMAB
     Indication: Psoriasis
     Dates: start: 202501
  2. TREMFYA [Suspect]
     Active Substance: GUSELKUMAB
     Indication: Crohn^s disease

REACTIONS (6)
  - Incorrect dose administered by device [Unknown]
  - Device defective [Unknown]
  - Skin disorder [Unknown]
  - Abdominal pain upper [Unknown]
  - Eye disorder [Unknown]
  - Blepharitis [Unknown]
